FAERS Safety Report 23277713 (Version 1)
Quarter: 2023Q4

REPORT INFORMATION
  Report Type: Spontaneous
  Country: US (occurrence: None)
  Receive Date: 20231207
  Receipt Date: 20231207
  Transmission Date: 20240110
  Serious: Yes (Hospitalization)
  Sender: FDA-Public Use
  Company Number: None

PATIENT
  Age: 55 Year
  Sex: Male
  Weight: 85.95 kg

DRUGS (1)
  1. BREYANZI [Suspect]
     Active Substance: LISOCABTAGENE MARALEUCEL
     Indication: Diffuse large B-cell lymphoma
     Dosage: OTHER STRENGTH : 100 MILLION CELLS;?FREQUENCY : ONCE;?
     Route: 042
     Dates: start: 20231002, end: 20231002

REACTIONS (6)
  - Pyrexia [None]
  - Myalgia [None]
  - Back pain [None]
  - Headache [None]
  - Fatigue [None]
  - Cytokine release syndrome [None]

NARRATIVE: CASE EVENT DATE: 20231002
